FAERS Safety Report 6188155-2 (Version None)
Quarter: 2009Q2

REPORT INFORMATION
  Report Type: 
  Country: None (occurrence: None)
  Receive Date: 20090513
  Receipt Date: 20080916
  Transmission Date: 20091009
  Serious: No
  Sender: FDA-Public Use
  Company Number: A0747945A

PATIENT
  Sex: Male

DRUGS (1)
  1. DYNACIRC CR [Suspect]
     Indication: HYPERTENSION
     Route: 048

REACTIONS (1)
  - THERAPEUTIC RESPONSE UNEXPECTED [None]
